FAERS Safety Report 23741590 (Version 1)
Quarter: 2024Q2

REPORT INFORMATION
  Report Type: Spontaneous
  Country: JP (occurrence: None)
  Receive Date: 20240415
  Receipt Date: 20240415
  Transmission Date: 20240716
  Serious: Yes (Death)
  Sender: FDA-Public Use
  Company Number: 2024A088094

PATIENT
  Age: 83 Year
  Sex: Male

DRUGS (1)
  1. ONDEXXYA [Suspect]
     Active Substance: ANDEXANET ALFA
     Dosage: 200.0MG UNKNOWN
     Route: 040
     Dates: start: 202311, end: 202311

REACTIONS (1)
  - Pneumonia aspiration [Fatal]
